FAERS Safety Report 11791149 (Version 1)
Quarter: 2015Q4

REPORT INFORMATION
  Report Type: Spontaneous
  Country: US (occurrence: US)
  Receive Date: 20151201
  Receipt Date: 20151201
  Transmission Date: 20160305
  Serious: No
  Sender: FDA-Public Use
  Company Number: US-WARNER CHILCOTT, LLC-1044864

PATIENT
  Age: 16 Year
  Sex: Female

DRUGS (2)
  1. LO LOESTRIN FE [Suspect]
     Active Substance: ETHINYL ESTRADIOL\NORETHINDRONE ACETATE
     Indication: HORMONE THERAPY
     Route: 048
     Dates: start: 201505
  2. ECALLANTIDE [Suspect]
     Active Substance: ECALLANTIDE
     Route: 058

REACTIONS (1)
  - Amenorrhoea [Not Recovered/Not Resolved]
